FAERS Safety Report 23547970 (Version 1)
Quarter: 2024Q1

REPORT INFORMATION
  Report Type: Report from Study
  Country: CA (occurrence: CA)
  Receive Date: 20240221
  Receipt Date: 20240221
  Transmission Date: 20240410
  Serious: Yes (Other)
  Sender: FDA-Public Use
  Company Number: CA-JNJFOC-20240115567

PATIENT
  Age: 65 Year
  Sex: Female

DRUGS (1)
  1. REMICADE [Suspect]
     Active Substance: INFLIXIMAB
     Indication: Product used for unknown indication
     Route: 041

REACTIONS (8)
  - Psoriatic arthropathy [Not Recovered/Not Resolved]
  - Vision blurred [Unknown]
  - Gastrointestinal disorder [Unknown]
  - Taste disorder [Unknown]
  - Headache [Unknown]
  - Eructation [Unknown]
  - Vitamin B12 increased [Unknown]
  - Oral fungal infection [Not Recovered/Not Resolved]

NARRATIVE: CASE EVENT DATE: 20240214
